FAERS Safety Report 7628258-6 (Version None)
Quarter: 2011Q3

REPORT INFORMATION
  Report Type: 
  Country: None (occurrence: None)
  Receive Date: 20110722
  Receipt Date: 20110711
  Transmission Date: 20111222
  Serious: Yes (Hospitalization)
  Sender: FDA-Public Use
  Company Number: US-JNJFOC-20110707189

PATIENT
  Sex: Male
  Weight: 102.51 kg

DRUGS (3)
  1. INFLIXIMAB, RECOMBINANT [Suspect]
     Route: 042
     Dates: start: 20080701
  2. INFLIXIMAB, RECOMBINANT [Suspect]
     Indication: PSORIASIS
     Route: 042
     Dates: start: 20110303, end: 20110501
  3. METHOTREXATE [Concomitant]

REACTIONS (1)
  - BLOOD GLUCOSE INCREASED [None]
